FAERS Safety Report 4890908-5 (Version None)
Quarter: 2006Q1

REPORT INFORMATION
  Report Type: 
  Country: None (occurrence: None)
  Receive Date: 20060123
  Receipt Date: 20060112
  Transmission Date: 20060701
  Serious: Yes (Hospitalization)
  Sender: FDA-Public Use
  Company Number: SU-2006-004513

PATIENT
  Age: 71 Year
  Sex: Female
  Weight: 69.8539 kg

DRUGS (1)
  1. BENICAR [Suspect]
     Indication: DRUG USE FOR UNKNOWN INDICATION
     Dosage: 40 MG QD PO
     Route: 048
     Dates: start: 20030101, end: 20050308

REACTIONS (4)
  - DEPRESSION [None]
  - INSOMNIA [None]
  - REFUSAL OF TREATMENT BY PATIENT [None]
  - URINARY TRACT INFECTION [None]
